FAERS Safety Report 9715885 (Version 2)
Quarter: 2013Q4

REPORT INFORMATION
  Report Type: Report from Study
  Country: US (occurrence: US)
  Receive Date: 20131127
  Receipt Date: 20131127
  Transmission Date: 20140711
  Serious: Yes (Other)
  Sender: FDA-Public Use
  Company Number: US-ROCHE-1304158

PATIENT
  Sex: Male
  Weight: 50.5 kg

DRUGS (5)
  1. NUTROPIN AQ [Suspect]
     Indication: GROWTH RETARDATION
     Dosage: NIGHTLY
     Route: 058
  2. NUTROPIN AQ [Suspect]
     Indication: BODY HEIGHT BELOW NORMAL
     Route: 058
     Dates: end: 20130611
  3. NUTROPIN AQ [Suspect]
     Route: 058
     Dates: start: 20130611
  4. FEXOFENADINE [Concomitant]
  5. IBUPROFEN [Concomitant]
     Route: 048

REACTIONS (5)
  - Clavicle fracture [Recovered/Resolved]
  - Growth retardation [Unknown]
  - Delayed puberty [Unknown]
  - Growth retardation [Unknown]
  - Delayed puberty [Unknown]
